FAERS Safety Report 23473506 (Version 2)
Quarter: 2024Q1

REPORT INFORMATION
  Report Type: Report from Study
  Country: US (occurrence: US)
  Receive Date: 20240203
  Receipt Date: 20240213
  Transmission Date: 20240410
  Serious: No
  Sender: FDA-Public Use
  Company Number: US-UCBSA-2024003647

PATIENT
  Age: 75 Year
  Sex: Female

DRUGS (1)
  1. BIMEKIZUMAB [Suspect]
     Active Substance: BIMEKIZUMAB
     Indication: Psoriasis
     Dosage: UNK ONE CARTON
     Route: 058
     Dates: start: 20231222

REACTIONS (2)
  - Therapy interrupted [Unknown]
  - Product availability issue [Unknown]

NARRATIVE: CASE EVENT DATE: 20231231
